FAERS Safety Report 22136404 (Version 1)
Quarter: 2023Q1

REPORT INFORMATION
  Report Type: Spontaneous
  Country: MX (occurrence: MX)
  Receive Date: 20230324
  Receipt Date: 20230324
  Transmission Date: 20230417
  Serious: Yes (Other)
  Sender: FDA-Public Use
  Company Number: MX-002147023-NVSC2023MX062656

PATIENT
  Age: 80 Year
  Sex: Female
  Weight: 76 kg

DRUGS (1)
  1. EXFORGE HCT [Suspect]
     Active Substance: AMLODIPINE BESYLATE\HYDROCHLOROTHIAZIDE\VALSARTAN
     Indication: Blood pressure abnormal
     Dosage: 1 DOSAGE FORM, QD (5/160/12.5 MG, 5 YEARS AGO APPROXIMATELY)
     Route: 048

REACTIONS (6)
  - Hand fracture [Unknown]
  - Fall [Unknown]
  - Back pain [Unknown]
  - Spinal disorder [Unknown]
  - Osteoporosis [Unknown]
  - Gait disturbance [Unknown]

NARRATIVE: CASE EVENT DATE: 20220501
